FAERS Safety Report 20036654 (Version 1)
Quarter: 2021Q4

REPORT INFORMATION
  Report Type: Other
  Country: CN (occurrence: None)
  Receive Date: 20211105
  Receipt Date: 20211105
  Transmission Date: 20220303
  Serious: Yes (Other)
  Sender: FDA-Public Use
  Company Number: CN-ROCHE-2947846

PATIENT
  Age: 61 Year
  Sex: Male

DRUGS (8)
  1. BEVACIZUMAB [Suspect]
     Active Substance: BEVACIZUMAB
     Indication: Non-small cell lung cancer
     Dosage: ON DAY 1
     Route: 065
     Dates: start: 20170715, end: 20171128
  2. BEVACIZUMAB [Suspect]
     Active Substance: BEVACIZUMAB
     Route: 065
     Dates: start: 20180123
  3. PEMETREXED [Suspect]
     Active Substance: PEMETREXED
     Indication: Non-small cell lung cancer
     Dosage: ON DAY 1
     Route: 065
     Dates: start: 20170715, end: 20171128
  4. PEMETREXED [Suspect]
     Active Substance: PEMETREXED
     Route: 065
     Dates: start: 20180123
  5. CARBOPLATIN [Suspect]
     Active Substance: CARBOPLATIN
     Indication: Non-small cell lung cancer
     Dosage: ON DAY 1
     Route: 065
     Dates: start: 20170715, end: 20171128
  6. ABRAXANE [Concomitant]
     Active Substance: PACLITAXEL
  7. CATEQUENTINIB [Concomitant]
     Active Substance: CATEQUENTINIB
  8. TORIPALIMAB [Concomitant]
     Active Substance: TORIPALIMAB

REACTIONS (3)
  - Disease progression [Unknown]
  - Metastases to bone [Unknown]
  - Drug ineffective [Unknown]
